FAERS Safety Report 19027034 (Version 1)
Quarter: 2021Q1

REPORT INFORMATION
  Report Type: Spontaneous
  Country: RU (occurrence: RU)
  Receive Date: 20210318
  Receipt Date: 20210318
  Transmission Date: 20210420
  Serious: Yes (Death)
  Sender: FDA-Public Use
  Company Number: RU-BAYER-2021-104144

PATIENT
  Age: 48 Year
  Sex: Male

DRUGS (2)
  1. STIVARGA [Suspect]
     Active Substance: REGORAFENIB
     Indication: GASTROINTESTINAL STROMAL TUMOUR
     Dosage: DAILY DOSE 160 MG
     Dates: start: 201307, end: 201602
  2. PAZOPANIB [Concomitant]
     Active Substance: PAZOPANIB
     Dosage: 400 MG, BID

REACTIONS (1)
  - Gastric cancer [Fatal]
